FAERS Safety Report 16608660 (Version 3)
Quarter: 2019Q4

REPORT INFORMATION
  Report Type: Spontaneous
  Country: US (occurrence: US)
  Receive Date: 20190722
  Receipt Date: 20191021
  Transmission Date: 20200122
  Serious: Yes (Hospitalization)
  Sender: FDA-Public Use
  Company Number: US-PFIZER INC-2017505458

PATIENT
  Age: 42 Year
  Sex: Female
  Weight: 77.98 kg

DRUGS (10)
  1. LYRICA [Suspect]
     Active Substance: PREGABALIN
     Indication: NEURALGIA
     Dosage: 500 MG, DAILY (100 MG IN THE MORNING, 200 MG AT 3 PM AND 200 MG AT 11 PM)
     Dates: start: 20180802
  2. ACYCLOVIR. [Concomitant]
     Active Substance: ACYCLOVIR
     Indication: HERPES SIMPLEX MENINGOMYELITIS
     Dosage: 800 MG, 3X/DAY (1 PO (ORAL) Q (DAILY) 8 HOURS)
  3. AVONEX [Concomitant]
     Active Substance: INTERFERON BETA-1A
     Indication: MULTIPLE SCLEROSIS
     Dosage: UNK UNK, WEEKLY
  4. WELLBUTRIN [Concomitant]
     Active Substance: BUPROPION HYDROCHLORIDE
     Dosage: UNK UNK, 1X/DAY
  5. PREDNISONE. [Concomitant]
     Active Substance: PREDNISONE
     Dosage: UNK (2 IN THERE)
  6. ENTOCORT [Concomitant]
     Active Substance: BUDESONIDE
     Dosage: UNK
  7. LYRICA [Suspect]
     Active Substance: PREGABALIN
     Indication: POST HERPETIC NEURALGIA
     Dosage: 100 MG, THREE TIMES A DAY
     Route: 048
  8. LYRICA [Suspect]
     Active Substance: PREGABALIN
     Indication: MULTIPLE SCLEROSIS
     Dosage: 100MG 5X DAY
     Dates: start: 201604
  9. BUPROPION. [Concomitant]
     Active Substance: BUPROPION
     Indication: DEPRESSION
     Dosage: 75 MG, DAILY (1 PO (ORAL) Q (DAILY) )
     Route: 048
  10. MESALAMINE. [Concomitant]
     Active Substance: MESALAMINE
     Dosage: UNK, 2X/DAY

REACTIONS (3)
  - Mood swings [Not Recovered/Not Resolved]
  - Pruritus [Recovered/Resolved]
  - Pyrexia [Not Recovered/Not Resolved]
